FAERS Safety Report 8213436-8 (Version None)
Quarter: 2012Q1

REPORT INFORMATION
  Report Type: 
  Country: None (occurrence: None)
  Receive Date: 20120315
  Receipt Date: 20120308
  Transmission Date: 20120608
  Serious: Yes (Hospitalization)
  Sender: FDA-Public Use
  Company Number: PHHY2012BR020997

PATIENT
  Sex: Female

DRUGS (15)
  1. CIBELAR [Concomitant]
     Indication: NERVOUS SYSTEM DISORDER
  2. ISOSORBIDE MONONITRATE [Concomitant]
     Indication: CARDIAC DISORDER
  3. EXELON [Suspect]
     Dosage: 9.5 MG/24 HOURS (10 CM^2)
     Route: 062
  4. PANTOC [Concomitant]
     Indication: ABDOMINAL DISCOMFORT
  5. ATENOLOL [Concomitant]
     Indication: CARDIAC DISORDER
  6. CAPTOPRIL [Concomitant]
     Indication: CARDIAC DISORDER
     Dates: start: 20111101
  7. ASPIRIN [Concomitant]
     Indication: CARDIAC DISORDER
  8. VASTAREL [Concomitant]
     Indication: VASODILATION PROCEDURE
  9. CIPALAT [Concomitant]
     Indication: NERVOUS SYSTEM DISORDER
     Dates: start: 20110501
  10. EXELON [Suspect]
     Dosage: 9.5 MG/24 HOURS (10 CM^2)
     Route: 062
     Dates: start: 20110620
  11. EXELON [Suspect]
     Dosage: 13.3 MG/24 HOURS (15 CM^2)
     Route: 062
     Dates: start: 20110819
  12. DAFOMIN [Concomitant]
     Indication: DEPRESSION
     Dates: start: 20110501
  13. DIAMICRON [Concomitant]
     Indication: DIABETES MELLITUS
  14. ZOLPIDEM [Concomitant]
     Indication: INSOMNIA
     Dates: start: 20110501
  15. EXELON [Suspect]
     Dosage: 4.6 MG/24 HOURS (5 CM^2)
     Route: 062
     Dates: start: 20050511

REACTIONS (3)
  - ASTHENIA [None]
  - VOMITING [None]
  - MALAISE [None]
